FAERS Safety Report 7149705-2 (Version None)
Quarter: 2010Q4

REPORT INFORMATION
  Report Type: 
  Country: None (occurrence: None)
  Receive Date: 20101210
  Receipt Date: 20101203
  Transmission Date: 20110411
  Serious: Yes (Hospitalization)
  Sender: FDA-Public Use
  Company Number: US-BIOGENIDEC-2010BI033799

PATIENT
  Age: 63 Year
  Sex: Female

DRUGS (1)
  1. TYSABRI [Suspect]
     Indication: MULTIPLE SCLEROSIS
     Route: 042
     Dates: start: 20080109, end: 20100922

REACTIONS (9)
  - ABASIA [None]
  - ANAEMIA [None]
  - CLOSTRIDIUM DIFFICILE COLITIS [None]
  - ESCHERICHIA URINARY TRACT INFECTION [None]
  - INJURY ASSOCIATED WITH DEVICE [None]
  - RENAL FAILURE ACUTE [None]
  - SEPSIS [None]
  - SHOCK [None]
  - TOOTH FRACTURE [None]
